FAERS Safety Report 5194091-0 (Version None)
Quarter: 2006Q4

REPORT INFORMATION
  Report Type: 
  Country: None (occurrence: None)
  Receive Date: 20061228
  Receipt Date: 20061108
  Transmission Date: 20070319
  Serious: Yes (Hospitalization)
  Sender: FDA-Public Use
  Company Number: MX-ELI_LILLY_AND_COMPANY-MX200611001473

PATIENT
  Age: 50 Year
  Sex: Female
  Weight: 69 kg

DRUGS (7)
  1. FORTEO [Suspect]
     Indication: OSTEOPOROSIS
     Dosage: 20 UG, DAILY (1/D)
     Route: 058
     Dates: start: 20061018, end: 20061113
  2. KETOROLAC TROMETAMOL [Concomitant]
     Indication: ANALGESIC EFFECT
     Dosage: 10 MG, EVERY 56 HOURS
     Route: 030
     Dates: end: 20061113
  3. ADEPSIQUE [Concomitant]
     Indication: INSOMNIA
     Dosage: UNK UNK, 2/D
     Route: 048
     Dates: end: 20061113
  4. ADEPSIQUE [Concomitant]
     Dosage: 1 U, EACH EVENING
     Route: 048
  5. NAPROXEN [Concomitant]
     Indication: ANTIINFLAMMATORY THERAPY
     Dosage: UNK UNK, EVERY 8 HRS
     Route: 048
  6. CALCIUM [Concomitant]
     Dates: end: 20061113
  7. ESTROGENS [Concomitant]
     Indication: MENOPAUSE
     Dates: end: 20061113

REACTIONS (6)
  - ARTHRITIS [None]
  - ARTHRITIS INFECTIVE [None]
  - ASTHENIA [None]
  - BURNING SENSATION [None]
  - FATIGUE [None]
  - TREMOR [None]
